FAERS Safety Report 8983998 (Version 1)
Quarter: 2012Q4

REPORT INFORMATION
  Report Type: Spontaneous
  Country: US (occurrence: None)
  Receive Date: 20121218
  Receipt Date: 20121218
  Transmission Date: 20130627
  Serious: Yes (Life-Threatening, Other)
  Sender: FDA-Public Use
  Company Number: None

PATIENT
  Age: 62 Year
  Sex: Male
  Weight: 92.53 kg

DRUGS (3)
  1. AMBIEN 12.5 CR AVENTI-SANDOLF [Suspect]
     Indication: INSOMNIA
     Dosage: 1 or 2 nightly po   5 years
     Route: 048
     Dates: start: 20070101, end: 20121201
  2. NARDIL 90 MG UNKNOWN [Suspect]
     Indication: DEPRESSION
     Dosage: 23 years - nardil nightly po
     Route: 048
     Dates: start: 19900101, end: 20121201
  3. BENZODIAZAPINE [Concomitant]

REACTIONS (3)
  - Somnambulism [None]
  - Somnambulism [None]
  - Legal problem [None]
